FAERS Safety Report 9337907 (Version 2)
Quarter: 2013Q3

REPORT INFORMATION
  Report Type: Spontaneous
  Country: US (occurrence: US)
  Receive Date: 20130608
  Receipt Date: 20130813
  Transmission Date: 20140515
  Serious: No
  Sender: FDA-Public Use
  Company Number: US-009507513-1305USA017583

PATIENT
  Age: 23 Year
  Sex: Female
  Weight: 112.2 kg

DRUGS (2)
  1. IMPLANON [Suspect]
     Indication: CONTRACEPTION
     Dosage: 1 ROD, IN THE PATIENT^S ARM
     Route: 059
     Dates: start: 201008, end: 201307
  2. VALACYCLOVIR HYDROCHLORIDE [Concomitant]

REACTIONS (2)
  - Menstruation irregular [Recovered/Resolved]
  - Menorrhagia [Recovered/Resolved]
